FAERS Safety Report 16135293 (Version 1)
Quarter: 2019Q1

REPORT INFORMATION
  Report Type: Spontaneous
  Country: US (occurrence: US)
  Receive Date: 20190329
  Receipt Date: 20190329
  Transmission Date: 20190418
  Serious: No
  Sender: FDA-Public Use
  Company Number: US-SA-2019SA083303

PATIENT
  Age: 36 Year
  Sex: Female
  Weight: 63 kg

DRUGS (5)
  1. ADVIL [IBUPROFEN] [Concomitant]
     Active Substance: IBUPROFEN
  2. CALCIUM CITRATE + D [Concomitant]
     Active Substance: CALCIUM CITRATE\CHOLECALCIFEROL
  3. YAZ [Concomitant]
     Active Substance: DROSPIRENONE\ETHINYL ESTRADIOL
  4. AUBAGIO [Suspect]
     Active Substance: TERIFLUNOMIDE
     Indication: MULTIPLE SCLEROSIS
     Dosage: 14 MG, QD
     Route: 048
     Dates: start: 20180611
  5. AVONEX [Concomitant]
     Active Substance: INTERFERON BETA-1A

REACTIONS (4)
  - Hypertension [Unknown]
  - Headache [Unknown]
  - Chest pain [Unknown]
  - Dyspnoea [Unknown]

NARRATIVE: CASE EVENT DATE: 20190305
